FAERS Safety Report 9619733 (Version 3)
Quarter: 2013Q4

REPORT INFORMATION
  Report Type: Spontaneous
  Country: US (occurrence: US)
  Receive Date: 20131014
  Receipt Date: 20131202
  Transmission Date: 20140711
  Serious: Yes (Hospitalization)
  Sender: FDA-Public Use
  Company Number: US-GLAXOSMITHKLINE-A1044583A

PATIENT
  Age: 70 Year
  Sex: Male

DRUGS (9)
  1. ADVAIR [Suspect]
     Indication: ASTHMA
     Dosage: 1PUFF PER DAY
     Route: 055
  2. COMBIVENT [Concomitant]
  3. SIMVASTATIN [Concomitant]
  4. GLIPIZIDE [Concomitant]
  5. PRORENAL [Concomitant]
  6. CALCIUM SUPPLEMENTS [Concomitant]
  7. OMEPRAZOLE [Concomitant]
  8. VENLAFAXINE [Concomitant]
  9. ASPIRIN [Concomitant]

REACTIONS (7)
  - Hypoxia [Recovered/Resolved]
  - Dyspnoea [Recovered/Resolved]
  - Device related infection [Recovered/Resolved]
  - Renal failure [Unknown]
  - Granulomatosis with polyangiitis [Not Recovered/Not Resolved]
  - Off label use [Not Recovered/Not Resolved]
  - Product quality issue [Unknown]
